FAERS Safety Report 9239240 (Version 1)
Quarter: 2013Q2

REPORT INFORMATION
  Report Type: Spontaneous
  Country: US (occurrence: US)
  Receive Date: 20130417
  Receipt Date: 20130417
  Transmission Date: 20140414
  Serious: Yes (Other)
  Sender: FDA-Public Use
  Company Number: US-RB-032284-11

PATIENT
  Age: 31 Year
  Sex: Female

DRUGS (3)
  1. SUBOXONE FILM [Suspect]
     Indication: DRUG DEPENDENCE
     Route: 060
     Dates: start: 201010, end: 2011
  2. SUBUTEX [Suspect]
     Indication: DRUG DEPENDENCE
     Route: 065
     Dates: start: 2011, end: 201206
  3. PERCOCET [Concomitant]
     Indication: PRODUCT USED FOR UNKNOWN INDICATION
     Dosage: REPORTED TOOK 4 TIMES PER DAY, EXACT DOSING DETAILS UNKNOWN
     Route: 065

REACTIONS (2)
  - Exposure during pregnancy [Recovered/Resolved]
  - Premature delivery [Recovered/Resolved]
